FAERS Safety Report 9419227 (Version 1)
Quarter: 2013Q3

REPORT INFORMATION
  Report Type: Spontaneous
  Country: US (occurrence: US)
  Receive Date: 20130725
  Receipt Date: 20130725
  Transmission Date: 20140515
  Serious: No
  Sender: FDA-Public Use
  Company Number: US-GLAXOSMITHKLINE-A0980067A

PATIENT
  Age: 64 Year
  Sex: Female

DRUGS (4)
  1. LAMICTAL [Suspect]
     Indication: CEREBRAL PALSY
     Dosage: 25MG PER DAY
     Route: 048
     Dates: start: 201201, end: 201201
  2. DILANTIN [Concomitant]
  3. PROTONIX [Concomitant]
  4. PREDNISONE [Concomitant]

REACTIONS (1)
  - Dyspepsia [Not Recovered/Not Resolved]
